FAERS Safety Report 21275473 (Version 4)
Quarter: 2022Q4

REPORT INFORMATION
  Report Type: Report from Study
  Country: US (occurrence: US)
  Receive Date: 20220831
  Receipt Date: 20221003
  Transmission Date: 20230113
  Serious: No
  Sender: FDA-Public Use
  Company Number: US-NOVARTISTESTPH-NVSC2022US196359

PATIENT
  Sex: Female

DRUGS (2)
  1. PIQRAY [Suspect]
     Active Substance: ALPELISIB
     Indication: Breast cancer
     Dosage: 300 MG, QD
     Route: 048
     Dates: start: 202208
  2. PIQRAY [Suspect]
     Active Substance: ALPELISIB
     Dosage: 250 MG
     Route: 065

REACTIONS (7)
  - Adverse drug reaction [Unknown]
  - Oral pain [Unknown]
  - Urticaria [Recovering/Resolving]
  - Erythema [Unknown]
  - Rash [Recovering/Resolving]
  - Decreased appetite [Unknown]
  - Pruritus [Recovering/Resolving]
